FAERS Safety Report 23955812 (Version 4)
Quarter: 2024Q3

REPORT INFORMATION
  Report Type: Spontaneous
  Country: DE (occurrence: DE)
  Receive Date: 20240610
  Receipt Date: 20240705
  Transmission Date: 20241017
  Serious: Yes (Life-Threatening, Hospitalization, Other)
  Sender: AUROBINDO
  Company Number: DE-MLMSERVICE-20240528-PI080114-00190-1

PATIENT
  Age: 17 Year
  Sex: Female
  Weight: 47.3 kg

DRUGS (6)
  1. LAMOTRIGINE [Suspect]
     Active Substance: LAMOTRIGINE
     Indication: Partial seizures
     Dosage: 175 MILLIGRAM, ONCE A DAY
     Route: 065
  2. LAMOTRIGINE [Suspect]
     Active Substance: LAMOTRIGINE
     Indication: Epilepsy
     Dosage: 200 MILLIGRAM, ONCE A DAY
     Route: 065
  3. LAMOTRIGINE [Suspect]
     Active Substance: LAMOTRIGINE
     Indication: Generalised tonic-clonic seizure
  4. CLOBAZAM [Concomitant]
     Active Substance: CLOBAZAM
     Indication: Epilepsy
     Dosage: UNK
     Route: 065
  5. CLOBAZAM [Concomitant]
     Active Substance: CLOBAZAM
     Indication: Generalised tonic-clonic seizure
  6. CLOBAZAM [Concomitant]
     Active Substance: CLOBAZAM
     Indication: Partial seizures

REACTIONS (12)
  - Drug reaction with eosinophilia and systemic symptoms [Recovered/Resolved]
  - Intentional product misuse [Recovering/Resolving]
  - Intentional overdose [Recovered/Resolved]
  - Pericardial effusion [Recovering/Resolving]
  - Tubulointerstitial nephritis [Recovering/Resolving]
  - Acute kidney injury [Recovering/Resolving]
  - Renal tubular necrosis [Recovering/Resolving]
  - Lymphopenia [Recovering/Resolving]
  - Hyponatraemia [Recovering/Resolving]
  - Electrocardiogram QT prolonged [Recovered/Resolved]
  - Treatment noncompliance [Recovered/Resolved]
  - Toxicity to various agents [Recovered/Resolved]
